FAERS Safety Report 24018544 (Version 1)
Quarter: 2024Q2

REPORT INFORMATION
  Report Type: Spontaneous
  Country: CA (occurrence: CA)
  Receive Date: 20240627
  Receipt Date: 20240627
  Transmission Date: 20240715
  Serious: Yes (Other)
  Sender: FDA-Public Use
  Company Number: CA-SANDOZ-SDZ2024CA060766

PATIENT
  Age: 24 Year
  Sex: Female

DRUGS (4)
  1. ADALIMUMAB [Suspect]
     Active Substance: ADALIMUMAB\ISOPROPYL ALCOHOL
     Indication: Crohn^s disease
     Dosage: 40 MG, QW
     Route: 058
  2. ADALIMUMAB [Suspect]
     Active Substance: ADALIMUMAB\ISOPROPYL ALCOHOL
     Dosage: UNK, Q2W
     Route: 058
  3. USTEKINUMAB [Concomitant]
     Active Substance: USTEKINUMAB
     Dosage: 90 MG,1 EVERY 4 WEEKS
     Route: 065
  4. USTEKINUMAB [Concomitant]
     Active Substance: USTEKINUMAB
     Indication: Product used for unknown indication
     Dosage: 90 MG,1 EVERY 8 WEEKS
     Route: 065

REACTIONS (2)
  - Gastrointestinal disorder [Unknown]
  - Small intestinal obstruction [Unknown]
